FAERS Safety Report 21359028 (Version 1)
Quarter: 2022Q3

REPORT INFORMATION
  Report Type: Spontaneous
  Country: FI (occurrence: None)
  Receive Date: 20220921
  Receipt Date: 20220921
  Transmission Date: 20221027
  Serious: Yes (Other)
  Sender: FDA-Public Use
  Company Number: FI-ROCHE-3182630

PATIENT

DRUGS (1)
  1. RITUXIMAB [Suspect]
     Active Substance: RITUXIMAB
     Indication: Follicular lymphoma
     Dosage: FIRST-LINE THERAPY (NAIVE), 6 CYCLES OF R-CYTOSTATIC + 2 CYCLES OF R AND THEN R MAINTENANCE ONCE EVE
     Route: 065

REACTIONS (1)
  - Follicular lymphoma [Unknown]
